FAERS Safety Report 4202121 (Version 2)
Quarter: 2016Q1

REPORT INFORMATION
  Report Type: Spontaneous
  Country: FR (occurrence: FR)
  Receive Date: 20040902
  Receipt Date: 20160110
  Transmission Date: 20160526
  Serious: Yes (Hospitalization)
  Sender: FDA-Public Use
  Company Number: FR-BRISTOL-MYERS SQUIBB COMPANY-12617114

PATIENT
  Age: 27 Year
  Sex: Female

DRUGS (3)
  1. VIDEX EC [Suspect]
     Active Substance: DIDANOSINE
     Indication: HIV INFECTION
     Dosage: 400 MG, QD
     Route: 048
     Dates: start: 20040130, end: 20040416
  2. VIRACEPT [Concomitant]
     Active Substance: NELFINAVIR MESYLATE
     Indication: HIV INFECTION
     Dosage: 250 MG, QD
     Route: 048
     Dates: end: 20040416
  3. RETROVIR [Concomitant]
     Active Substance: ZIDOVUDINE
     Indication: HIV INFECTION
     Dosage: 300 MG, BID
     Route: 048

REACTIONS (9)
  - Gastrointestinal disorder [Recovered/Resolved]
  - Anaemia [Unknown]
  - Aspartate aminotransferase increased [Recovered/Resolved]
  - Nausea [Unknown]
  - Decreased appetite [Unknown]
  - Blood bilirubin increased [Recovered/Resolved]
  - Pregnancy [Recovered/Resolved]
  - Alanine aminotransferase increased [Recovered/Resolved]
  - Live birth [Unknown]

NARRATIVE: CASE EVENT DATE: 20030912
